FAERS Safety Report 5265903-7 (Version None)
Quarter: 2007Q1

REPORT INFORMATION
  Report Type: 
  Country: None (occurrence: None)
  Receive Date: 20070315
  Receipt Date: 20070305
  Transmission Date: 20070707
  Serious: Yes (Other)
  Sender: FDA-Public Use
  Company Number: FR-JNJFOC-20070301851

PATIENT
  Age: 56 Year
  Sex: Male

DRUGS (3)
  1. DAKTARIN [Suspect]
     Route: 048
  2. DAKTARIN [Suspect]
     Indication: DRUG USE FOR UNKNOWN INDICATION
     Route: 048
  3. ALODONT [Concomitant]
     Route: 065

REACTIONS (2)
  - DYSPNOEA [None]
  - OEDEMA MOUTH [None]
